FAERS Safety Report 17948322 (Version 1)
Quarter: 2020Q2

REPORT INFORMATION
  Report Type: Spontaneous
  Country: DE (occurrence: DE)
  Receive Date: 20200626
  Receipt Date: 20200626
  Transmission Date: 20200714
  Serious: Yes (Hospitalization, Other)
  Sender: FDA-Public Use
  Company Number: DE-PFIZER INC-2020242453

PATIENT
  Age: 34 Year
  Sex: Female

DRUGS (6)
  1. PREDNISOLONE. [Suspect]
     Active Substance: PREDNISOLONE
     Dosage: 10 MG, DAILY
  2. METHOTREXATE SODIUM. [Suspect]
     Active Substance: METHOTREXATE SODIUM
     Dosage: 15 MG
     Route: 058
     Dates: start: 201908, end: 20200114
  3. PREDNISOLONE. [Suspect]
     Active Substance: PREDNISOLONE
     Dosage: 25 MG, DAILY
  4. PREDNISOLONE. [Suspect]
     Active Substance: PREDNISOLONE
     Dosage: 50 MG
     Dates: end: 20200209
  5. SULFASALAZINE. [Suspect]
     Active Substance: SULFASALAZINE
     Dosage: UNK
     Dates: start: 201907, end: 20191212
  6. PREDNISOLONE. [Suspect]
     Active Substance: PREDNISOLONE
     Dosage: UNK
     Dates: start: 201907

REACTIONS (9)
  - Petechiae [Recovered/Resolved]
  - Lymphangioma [Unknown]
  - Gardner-Diamond syndrome [Unknown]
  - Haematoma [Unknown]
  - Hypersensitivity vasculitis [Unknown]
  - Fibrosis [Unknown]
  - Abdominal pain lower [Not Recovered/Not Resolved]
  - Feeling of despair [Unknown]
  - Fat necrosis [Unknown]

NARRATIVE: CASE EVENT DATE: 201908
